FAERS Safety Report 6960753-5 (Version None)
Quarter: 2010Q3

REPORT INFORMATION
  Report Type: 
  Country: None (occurrence: None)
  Receive Date: 20100901
  Receipt Date: 20100819
  Transmission Date: 20110219
  Serious: Yes (Other)
  Sender: FDA-Public Use
  Company Number: US-ROCHE-723160

PATIENT

DRUGS (6)
  1. HERCEPTIN [Suspect]
     Indication: BREAST CANCER
     Dosage: DOSE: LOADING DOSE OF 4-2 FOR EIGHTEEN WEEKS
     Route: 065
  2. HERCEPTIN [Suspect]
     Dosage: DOSE: ^6Q3^
     Route: 065
  3. TAXOTERE [Suspect]
     Indication: BREAST CANCER
     Dosage: DOSE: LOADING DOSE OF 4-2 FOR EIGHTEEN WEEKS
     Route: 065
  4. TAXOTERE [Suspect]
     Dosage: DOSE: ^6Q3^
     Route: 065
  5. CARBOPLATIN [Suspect]
     Indication: BREAST CANCER
     Dosage: DOSE: LOADING DOSE OF 4-2 FOR EIGHTEEN WEEKS
     Route: 065
  6. CARBOPLATIN [Suspect]
     Dosage: DOSE: ^6Q3^
     Route: 065

REACTIONS (3)
  - INSOMNIA [None]
  - LIMB DISCOMFORT [None]
  - MYALGIA [None]
